FAERS Safety Report 10009317 (Version 2)
Quarter: 2014Q1

REPORT INFORMATION
  Report Type: Spontaneous
  Country: US (occurrence: US)
  Receive Date: 20140313
  Receipt Date: 20140313
  Transmission Date: 20141002
  Serious: Yes (Hospitalization)
  Sender: FDA-Public Use
  Company Number: US-GILEAD-2013-0074467

PATIENT
  Sex: Female

DRUGS (6)
  1. LETAIRIS [Suspect]
     Indication: PULMONARY ARTERIAL HYPERTENSION
     Dosage: 10 MG, QD
     Dates: start: 20110526
  2. LETAIRIS [Suspect]
     Dates: start: 20110527
  3. REVATIO [Concomitant]
  4. REMODULIN [Concomitant]
  5. COUMADIN                           /00014802/ [Concomitant]
  6. ADCIRCA [Concomitant]

REACTIONS (1)
  - Vomiting [Unknown]
